FAERS Safety Report 6518187-3 (Version None)
Quarter: 2009Q4

REPORT INFORMATION
  Report Type: 
  Country: None (occurrence: None)
  Receive Date: 20091218
  Receipt Date: 20091203
  Transmission Date: 20100525
  Serious: Yes (Other)
  Sender: FDA-Public Use
  Company Number: 1000010734

PATIENT
  Age: 84 Year
  Sex: Female

DRUGS (9)
  1. ESCITALOPRAM [Suspect]
     Dosage: (5 MG), ORAL
     Route: 048
     Dates: start: 20050101, end: 20090520
  2. GALANTAMINE HYDROBROMIDE [Suspect]
     Dosage: (8 MG), ORAL
     Route: 048
     Dates: start: 20090117, end: 20090520
  3. SINEMET [Concomitant]
  4. IDALPREM [Concomitant]
  5. DEPRAX [Concomitant]
  6. AKINETON [Concomitant]
  7. ADIRO [Concomitant]
  8. OMEPRAZOLE [Concomitant]
  9. BELMALAX [Concomitant]

REACTIONS (2)
  - HALLUCINATION [None]
  - PARKINSONISM [None]
